FAERS Safety Report 6869766-5 (Version None)
Quarter: 2010Q3

REPORT INFORMATION
  Report Type: 
  Country: None (occurrence: None)
  Receive Date: 20100722
  Receipt Date: 20080824
  Transmission Date: 20110219
  Serious: No
  Sender: FDA-Public Use
  Company Number: US-PFIZER INC-2008070370

PATIENT
  Sex: Male
  Weight: 68.6 kg

DRUGS (6)
  1. CHANTIX [Suspect]
     Indication: SMOKING CESSATION THERAPY
     Dates: start: 20080201
  2. ACTONEL [Concomitant]
  3. CALCITRIOL [Concomitant]
  4. CELEXA [Concomitant]
     Indication: DEPRESSION
  5. PROTONIX [Concomitant]
     Indication: DYSPEPSIA
  6. MULTI-VITAMINS [Concomitant]

REACTIONS (2)
  - NAUSEA [None]
  - VOMITING [None]
